FAERS Safety Report 9503875 (Version 1)
Quarter: 2013Q3

REPORT INFORMATION
  Report Type: Report from Study
  Country: US (occurrence: US)
  Receive Date: 20130906
  Receipt Date: 20130906
  Transmission Date: 20140515
  Serious: Yes (Hospitalization)
  Sender: FDA-Public Use
  Company Number: US-ABBOTT-13P-163-1140411-00

PATIENT
  Age: 35 Year
  Sex: Male
  Weight: 68.1 kg

DRUGS (8)
  1. HUMIRA [Suspect]
     Indication: PSORIATIC ARTHROPATHY
     Dates: start: 201211, end: 201305
  2. HUMIRA [Suspect]
     Dates: start: 201305
  3. MELOXICAM [Concomitant]
     Indication: PAIN
  4. OXYCODONE [Concomitant]
     Indication: PAIN
  5. NEUROTIN [Concomitant]
     Indication: TREMOR
  6. VYVANSE [Concomitant]
     Indication: ATTENTION DEFICIT/HYPERACTIVITY DISORDER
  7. UNKNOWN CREAMS FOR SKIN [Concomitant]
     Indication: PSORIASIS
  8. CLOBETASOL [Concomitant]
     Indication: PSORIASIS

REACTIONS (7)
  - Road traffic accident [Unknown]
  - Balance disorder [Not Recovered/Not Resolved]
  - Head injury [Unknown]
  - Joint injury [Unknown]
  - Injury [Unknown]
  - Rib fracture [Unknown]
  - Contusion [Recovering/Resolving]
